FAERS Safety Report 6082304-2 (Version None)
Quarter: 2009Q1

REPORT INFORMATION
  Report Type: 
  Country: None (occurrence: None)
  Receive Date: 20090126
  Receipt Date: 20080711
  Transmission Date: 20090719
  Serious: Yes (Hospitalization)
  Sender: FDA-Public Use
  Company Number: 277281

PATIENT
  Age: 79 Year
  Sex: Male
  Weight: 104.3 kg

DRUGS (2)
  1. LEVEMIR [Suspect]
     Indication: BLOOD INSULIN
     Dosage: 25 LU QAM + QPM, SUBCUTANEOUS
     Route: 058
  2. LEVEMIR [Suspect]
     Indication: INSULIN-REQUIRING TYPE 2 DIABETES MELLITUS
     Dosage: 25 LU QAM + QPM, SUBCUTANEOUS
     Route: 058

REACTIONS (1)
  - HYPOGLYCAEMIC UNCONSCIOUSNESS [None]
